FAERS Safety Report 6417339-0 (Version None)
Quarter: 2009Q4

REPORT INFORMATION
  Report Type: 
  Country: None (occurrence: None)
  Receive Date: 20091028
  Receipt Date: 20091016
  Transmission Date: 20100525
  Serious: Yes (Disabling)
  Sender: FDA-Public Use
  Company Number: FR-PFIZER INC-2009284070

PATIENT
  Age: 63 Year

DRUGS (1)
  1. AROMASINE [Suspect]
     Dosage: 25 MG, 1X/DAY
     Route: 048
     Dates: start: 20090401, end: 20090401

REACTIONS (1)
  - LOWER MOTOR NEURONE LESION [None]
